FAERS Safety Report 17016929 (Version 1)
Quarter: 2019Q4

REPORT INFORMATION
  Report Type: Spontaneous
  Country: US (occurrence: US)
  Receive Date: 20191111
  Receipt Date: 20191111
  Transmission Date: 20200122
  Serious: No
  Sender: FDA-Public Use
  Company Number: US-MYLANLABS-2019M1104694

PATIENT
  Sex: Female

DRUGS (1)
  1. BETAMETHASONE VALERATE FOAM [Suspect]
     Active Substance: BETAMETHASONE VALERATE
     Indication: PRODUCT USED FOR UNKNOWN INDICATION
     Dosage: UNK
     Route: 061

REACTIONS (3)
  - Product dose omission [Recovered/Resolved]
  - Incorrect dose administered [Unknown]
  - Device breakage [Unknown]
